FAERS Safety Report 7576825-0 (Version None)
Quarter: 2011Q2

REPORT INFORMATION
  Report Type: 
  Country: None (occurrence: None)
  Receive Date: 20110628
  Receipt Date: 20110620
  Transmission Date: 20111010
  Serious: Yes (Other)
  Sender: FDA-Public Use
  Company Number: FR-JNJFOC-20110610431

PATIENT
  Age: 6 Decade
  Sex: Male

DRUGS (4)
  1. DURAGESIC-100 [Suspect]
     Route: 062
  2. DURAGESIC-100 [Suspect]
     Indication: NEOPLASM MALIGNANT
     Route: 062
  3. ACETAMINOPHEN [Concomitant]
     Indication: PAIN
  4. DURAGESIC-100 [Suspect]
     Route: 062

REACTIONS (4)
  - WITHDRAWAL SYNDROME [None]
  - MUSCULOSKELETAL STIFFNESS [None]
  - DEPRESSION [None]
  - VERTIGO [None]
